FAERS Safety Report 23579364 (Version 1)
Quarter: 2024Q1

REPORT INFORMATION
  Report Type: Spontaneous
  Country: DE (occurrence: None)
  Receive Date: 20240229
  Receipt Date: 20240229
  Transmission Date: 20240410
  Serious: Yes (Other)
  Sender: FDA-Public Use
  Company Number: 2024A048018

PATIENT
  Age: 62 Year
  Sex: Female

DRUGS (3)
  1. DURVALUMAB [Suspect]
     Active Substance: DURVALUMAB
     Dosage: UNKNOWN
  2. GEMCITABINE [Suspect]
     Active Substance: GEMCITABINE
  3. CISPLATIN [Suspect]
     Active Substance: CISPLATIN

REACTIONS (1)
  - Haematotoxicity [Unknown]
